FAERS Safety Report 16704525 (Version 1)
Quarter: 2019Q3

REPORT INFORMATION
  Report Type: Report from Study
  Country: IL (occurrence: IL)
  Receive Date: 20190814
  Receipt Date: 20190814
  Transmission Date: 20191004
  Serious: Yes (Other)
  Sender: FDA-Public Use
  Company Number: IL-009507513-1908ISR005443

PATIENT
  Age: 73 Year
  Sex: Female
  Weight: 76 kg

DRUGS (3)
  1. INSULIN [Concomitant]
     Active Substance: INSULIN NOS
     Dosage: VIA INJECTING, TWICE A DAY, 26 IN THE MORNING AND 22 AT NIGHT
  2. SITAGLIPTIN PHOSPHATE (+) METFORMIN HYDROCHLORIDE [Suspect]
     Active Substance: METFORMIN HYDROCHLORIDE\SITAGLIPTIN PHOSPHATE
     Indication: DIABETES MELLITUS
     Dosage: STRENGTH: 50/1000 MG. 50/1000MG TABLET TWICE A DAY
     Route: 048
     Dates: start: 20150901
  3. INSULIN [Concomitant]
     Active Substance: INSULIN NOS
     Dosage: 24 TO 26 UNIT
     Dates: start: 201812

REACTIONS (19)
  - Blood glucose fluctuation [Unknown]
  - Malaise [Unknown]
  - Fatigue [Not Recovered/Not Resolved]
  - Insomnia [Unknown]
  - Pneumonia [Not Recovered/Not Resolved]
  - Gait disturbance [Unknown]
  - Asthenia [Unknown]
  - Cataract [Unknown]
  - Blood glucose increased [Not Recovered/Not Resolved]
  - Nasopharyngitis [Not Recovered/Not Resolved]
  - Retinal disorder [Unknown]
  - Back pain [Not Recovered/Not Resolved]
  - Memory impairment [Unknown]
  - Hunger [Unknown]
  - Tooth disorder [Unknown]
  - Facial nerve disorder [Unknown]
  - Intervertebral disc protrusion [Not Recovered/Not Resolved]
  - Weight increased [Unknown]
  - Glycosylated haemoglobin decreased [Unknown]

NARRATIVE: CASE EVENT DATE: 2018
